FAERS Safety Report 4895527-2 (Version None)
Quarter: 2006Q1

REPORT INFORMATION
  Report Type: 
  Country: None (occurrence: None)
  Receive Date: 20060125
  Receipt Date: 20040803
  Transmission Date: 20060701
  Serious: Yes (Hospitalization)
  Sender: FDA-Public Use
  Company Number: FR_040804567

PATIENT
  Age: 83 Year
  Sex: Female

DRUGS (2)
  1. VANCOMYCIN [Suspect]
     Indication: ACUTE ENDOCARDITIS
     Dosage: 1 G/2 DAY
     Dates: start: 20040612, end: 20040618
  2. GENTAMICIN [Concomitant]

REACTIONS (4)
  - DIALYSIS [None]
  - DRUG LEVEL INCREASED [None]
  - HYPERKALAEMIA [None]
  - RENAL FAILURE ACUTE [None]
